FAERS Safety Report 8495509-8 (Version None)
Quarter: 2012Q3

REPORT INFORMATION
  Report Type: 
  Country: None (occurrence: None)
  Receive Date: 20120709
  Receipt Date: 20120703
  Transmission Date: 20120928
  Serious: Yes (Hospitalization, Other)
  Sender: FDA-Public Use
  Company Number: DE-PFIZER INC-2009280212

PATIENT
  Age: 62 Year
  Sex: Male

DRUGS (11)
  1. ASPIRIN [Concomitant]
  2. TENORMIN [Concomitant]
  3. METOPROLOL SUCCINATE [Concomitant]
  4. SIMVASTATIN [Concomitant]
  5. SUTENT [Suspect]
     Indication: RENAL CELL CARCINOMA
     Dosage: 50 MG, 1X/DAY
     Route: 048
     Dates: start: 20090714
  6. ISOSORBIDE DINITRATE [Concomitant]
  7. ACTRAPHANE [Concomitant]
  8. ATORVASTATIN CALCIUM [Concomitant]
  9. PANTOPRAZOLE [Concomitant]
  10. RAMIPRIL [Concomitant]
  11. TORSEMIDE [Concomitant]

REACTIONS (2)
  - PROTEINURIA [None]
  - ANAEMIA [None]
